FAERS Safety Report 9257090 (Version 3)
Quarter: 2014Q1

REPORT INFORMATION
  Report Type: Spontaneous
  Country: US (occurrence: None)
  Receive Date: 20121212
  Receipt Date: 20130318
  Transmission Date: 20141002
  Serious: Yes (Hospitalization, Other)
  Sender: FDA-Public Use
  Company Number: 1208USA007598

PATIENT
  Age: 59 Year
  Sex: Female

DRUGS (3)
  1. PEG-INTRON [Suspect]
     Indication: HEPATITIS C
     Dosage: UNK?0.3 UNITS UNSPECIFIED
     Dates: start: 20120723
  2. REBETOL (RIBAVIRIN) CAPSULE [Suspect]
     Indication: HEPATITIS C
     Dosage: UNK UNK, BID
     Dates: start: 20120723
  3. VICTRELIS (BOCEPREVIR) CAPSULE [Suspect]
     Indication: HEPATITIS C
     Dosage: UNK
     Dates: start: 20120820

REACTIONS (6)
  - Injection site erythema [None]
  - Pain in extremity [None]
  - Back pain [None]
  - Amnesia [None]
  - Haemoglobin decreased [None]
  - White blood cell count decreased [None]
